FAERS Safety Report 8797553 (Version 2)
Quarter: 2012Q4

REPORT INFORMATION
  Report Type: 
  Country: US (occurrence: US)
  Receive Date: 20120920
  Receipt Date: 20121003
  Transmission Date: 20130627
  Serious: No
  Sender: FDA-Public Use
  Company Number: US-PFIZER INC-2012230924

PATIENT
  Age: 66 Year
  Sex: Female
  Weight: 65.8 kg

DRUGS (3)
  1. CHANTIX [Suspect]
     Indication: SMOKING CESSATION THERAPY
     Dosage: 0.5 mg,daily
     Route: 048
     Dates: start: 20120911, end: 201209
  2. LISINOPRIL [Concomitant]
     Dosage: 5 mg, daily
  3. DYAZIDE [Concomitant]
     Dosage: 37.5/25 one daily

REACTIONS (1)
  - Vomiting [Recovered/Resolved]
